FAERS Safety Report 14657235 (Version 1)
Quarter: 2018Q1

REPORT INFORMATION
  Report Type: Spontaneous
  Country: DE (occurrence: US)
  Receive Date: 20180319
  Receipt Date: 20180319
  Transmission Date: 20180509
  Serious: No
  Sender: FDA-Public Use
  Company Number: DE-009507513-1803USA007100

PATIENT
  Sex: Male

DRUGS (1)
  1. PROPECIA [Suspect]
     Active Substance: FINASTERIDE
     Dosage: UNK
     Route: 048

REACTIONS (6)
  - Insomnia [Unknown]
  - Penile pain [Unknown]
  - Anxiety [Unknown]
  - Genital hypoaesthesia [Unknown]
  - Penile size reduced [Unknown]
  - Anti-androgen withdrawal syndrome [Unknown]
